FAERS Safety Report 19945702 (Version 1)
Quarter: 2021Q4

REPORT INFORMATION
  Report Type: Spontaneous
  Country: DE (occurrence: DE)
  Receive Date: 20211012
  Receipt Date: 20211012
  Transmission Date: 20220303
  Serious: Yes (Hospitalization)
  Sender: FDA-Public Use
  Company Number: DE-ADRED-06007-02

PATIENT
  Age: 82 Year
  Sex: Female

DRUGS (14)
  1. PREGABALIN [Suspect]
     Active Substance: PREGABALIN
     Indication: Product used for unknown indication
     Dosage: 75 MILLIGRAM, QD (75 MG, 0-0-1-0, KAPSELN)
     Route: 048
  2. TORSEMIDE [Suspect]
     Active Substance: TORSEMIDE
     Indication: Product used for unknown indication
     Dosage: 20 MILLIGRAM (20 MG, 1-0.5-0-0, TABLETTEN)
     Route: 048
  3. SERTRALINE [Suspect]
     Active Substance: SERTRALINE HYDROCHLORIDE
     Indication: Product used for unknown indication
     Dosage: 50 MILLIGRAM, QD (50 MG, 1-0-0-0, TABLETTEN)
     Route: 048
  4. DULAGLUTIDE [Concomitant]
     Active Substance: DULAGLUTIDE
     Dosage: UNK (INJECTION SOLUTION/INFUSION SOLUTION)
     Route: 058
  5. INSULIN DETEMIR [Concomitant]
     Active Substance: INSULIN DETEMIR
     Dosage: UNK (45-30-35-0, INJEKTION SOLUTION/INFUSION SOLUTION)
     Route: 058
  6. SITAGLIPTIN [Concomitant]
     Active Substance: SITAGLIPTIN
     Dosage: 50 MILLIGRAM, QD (50 MG, 1-0-0-0, TABLETTEN)
     Route: 048
  7. POTASSIUM CITRATE [Concomitant]
     Active Substance: POTASSIUM CITRATE
     Dosage: UNK (2-2-2-0, KAPSELN)
     Route: 048
  8. BISOPROLOL [Concomitant]
     Active Substance: BISOPROLOL
     Dosage: 5 MILLIGRAM, QD (5 MG, 1-0-0-0, TABLETTEN)
     Route: 048
  9. DIGITOXIN [Concomitant]
     Active Substance: DIGITOXIN
     Dosage: 0.07 MILLIGRAM, QD (0.07 MG, 1-0-0-0, TABLETTEN)
     Route: 048
  10. INSULIN LISPRO [Concomitant]
     Active Substance: INSULIN LISPRO
     Dosage: UNK (45-30-35-0, INJEKTION SOLUTION/INFUSION SOLUTION)
     Route: 058
  11. ATORVASTATIN [Concomitant]
     Active Substance: ATORVASTATIN
     Dosage: 20 MILLIGRAM, QD (20 MG, 0-0-1-0, TABLETTEN)
     Route: 048
  12. PANTOPRAZOLE [Concomitant]
     Active Substance: PANTOPRAZOLE
     Dosage: 40 MILLIGRAM, QD (40 MG, 1-0-0-0, TABLETTEN)
     Route: 048
  13. BECLOMETHASONE\FORMOTEROL [Concomitant]
     Active Substance: BECLOMETHASONE\FORMOTEROL
     Dosage: UNK (6|100 ?G, 1-0-0-0, METERED DOSE INHALER)
     Route: 055
  14. PHENPROCOUMON [Concomitant]
     Active Substance: PHENPROCOUMON
     Dosage: UNK (NACH INR, TABLETTEN)
     Route: 048

REACTIONS (2)
  - Pain [Unknown]
  - Fall [Unknown]
